FAERS Safety Report 18150748 (Version 1)
Quarter: 2020Q3

REPORT INFORMATION
  Report Type: Spontaneous
  Country: US (occurrence: US)
  Receive Date: 20200814
  Receipt Date: 20200814
  Transmission Date: 20201103
  Serious: Yes (Hospitalization)
  Sender: FDA-Public Use
  Company Number: None

PATIENT
  Sex: Female

DRUGS (7)
  1. ENBREL [Suspect]
     Active Substance: ETANERCEPT
     Indication: RHEUMATOID ARTHRITIS
  2. ANASTROZOLE. [Concomitant]
     Active Substance: ANASTROZOLE
  3. VIT D3/VIT C [Concomitant]
  4. FOLIC ACID. [Concomitant]
     Active Substance: FOLIC ACID
  5. PROLIA [Concomitant]
     Active Substance: DENOSUMAB
  6. METHOTREXATE. [Concomitant]
     Active Substance: METHOTREXATE
  7. PREDNISONE. [Concomitant]
     Active Substance: PREDNISONE

REACTIONS (2)
  - Arthralgia [None]
  - Drug ineffective [None]
